FAERS Safety Report 10010573 (Version 2)
Quarter: 2014Q2

REPORT INFORMATION
  Report Type: Spontaneous
  Country: US (occurrence: US)
  Receive Date: 20140314
  Receipt Date: 20140409
  Transmission Date: 20141212
  Serious: No
  Sender: FDA-Public Use
  Company Number: US-SHIRE-US201400385

PATIENT
  Age: 8 Year
  Sex: Female
  Weight: 27.12 kg

DRUGS (1)
  1. VYVANSE [Suspect]
     Indication: ATTENTION DEFICIT/HYPERACTIVITY DISORDER
     Dosage: 20 MG, 1X/DAY:QD
     Route: 048
     Dates: start: 20140306, end: 20140306

REACTIONS (10)
  - Formication [Recovered/Resolved]
  - Retching [Recovered/Resolved]
  - Fear [Recovered/Resolved]
  - Chills [Recovered/Resolved]
  - Tremor [Recovered/Resolved]
  - Decreased appetite [Not Recovered/Not Resolved]
  - Dizziness [Recovered/Resolved]
  - Crying [Recovered/Resolved]
  - Psychomotor hyperactivity [Recovered/Resolved]
  - Vomiting [Recovered/Resolved]
